FAERS Safety Report 12744721 (Version 1)
Quarter: 2016Q3

REPORT INFORMATION
  Report Type: Report from Study
  Country: ES (occurrence: ES)
  Receive Date: 20160915
  Receipt Date: 20160915
  Transmission Date: 20161109
  Serious: Yes (Other)
  Sender: FDA-Public Use
  Company Number: ES-BAXTER-2016BAX046242

PATIENT
  Age: 83 Year

DRUGS (17)
  1. RITUXIMAB [Suspect]
     Active Substance: RITUXIMAB
     Dosage: TREATMENT VISIT 6; COMPLETE DOSE
     Route: 065
     Dates: start: 20111024, end: 20111026
  2. GENOXAL [Suspect]
     Active Substance: CYCLOPHOSPHAMIDE
     Indication: CHRONIC LYMPHOCYTIC LEUKAEMIA
     Dosage: TREATMENT VISIT 1; REDUCE DOSE DUE TO NON HEMATOLOGIC TOXICITY
     Route: 065
     Dates: start: 20110426, end: 20110428
  3. RITUXIMAB [Suspect]
     Active Substance: RITUXIMAB
     Dosage: TREATMENT VISIT 5; COMPLETE DOSE
     Route: 065
     Dates: start: 20110926, end: 20110928
  4. GENOXAL [Suspect]
     Active Substance: CYCLOPHOSPHAMIDE
     Dosage: TREATMENT VISIT 6, DELAY DUE TO HEMATOLOGIC TOXICITY
     Route: 065
     Dates: start: 20111024, end: 20111026
  5. FLUDARABINE [Suspect]
     Active Substance: FLUDARABINE PHOSPHATE
     Dosage: TREATMENT VISIT 5
     Route: 065
     Dates: start: 20110926, end: 20110928
  6. FLUDARABINE [Suspect]
     Active Substance: FLUDARABINE PHOSPHATE
     Dosage: TREATMENT VISIT 6
     Route: 065
     Dates: start: 20111024, end: 20111026
  7. GENOXAL [Suspect]
     Active Substance: CYCLOPHOSPHAMIDE
     Dosage: TREATMENT VISIT 4
     Route: 065
     Dates: start: 20110808, end: 20110810
  8. FLUDARABINE [Suspect]
     Active Substance: FLUDARABINE PHOSPHATE
     Dosage: TREATMENT VISIT 2; DELAY AND REDUCED DUE TO NON HEMATOLOGIC TOXICITY
     Route: 065
     Dates: start: 20110615, end: 20110617
  9. FLUDARABINE [Suspect]
     Active Substance: FLUDARABINE PHOSPHATE
     Dosage: TREATMENT VISIT 3, REDUCE DOSE DUE TO NON HEMATOLOGIC TOXICITY
     Route: 065
     Dates: start: 20110711, end: 20110713
  10. FLUDARABINE [Suspect]
     Active Substance: FLUDARABINE PHOSPHATE
     Dosage: TREATMENT VISIT 4
     Route: 065
     Dates: start: 20110808, end: 20110810
  11. RITUXIMAB [Suspect]
     Active Substance: RITUXIMAB
     Dosage: TREATMENT VISIT 3; COMPLETE DOSE DUE TO HEMATOLOGIC TOXICITY
     Route: 065
     Dates: start: 20110711, end: 20110713
  12. RITUXIMAB [Suspect]
     Active Substance: RITUXIMAB
     Dosage: TREATMENT VISIT 4; COMPLETE DOSE
     Route: 065
     Dates: start: 20110808, end: 20110810
  13. GENOXAL [Suspect]
     Active Substance: CYCLOPHOSPHAMIDE
     Dosage: TREATMENT VISIT 3; REDUCE DOSE DUE TO NON HEMATOLOGIC TOXICITY
     Route: 065
     Dates: start: 20110711, end: 20110713
  14. FLUDARABINE [Suspect]
     Active Substance: FLUDARABINE PHOSPHATE
     Indication: CHRONIC LYMPHOCYTIC LEUKAEMIA
     Dosage: TREATMENT VISIT 6, DELAY DUE TO HEMATOLOGIC TOXICITY
     Route: 065
     Dates: start: 20110426, end: 20110428
  15. GENOXAL [Suspect]
     Active Substance: CYCLOPHOSPHAMIDE
     Dosage: TREATMENT VISIT 2; DELAY AND REDUCED DUE TO NON HEMATOLOGIC TOXICITY
     Route: 065
     Dates: start: 20110615, end: 20110617
  16. GENOXAL [Suspect]
     Active Substance: CYCLOPHOSPHAMIDE
     Dosage: TREATMENT VISIT 5
     Route: 065
     Dates: start: 20110926, end: 20110928
  17. RITUXIMAB [Suspect]
     Active Substance: RITUXIMAB
     Indication: CHRONIC LYMPHOCYTIC LEUKAEMIA
     Dosage: TREATMENT VISIT 2; COMPLETE DOSE DUE TO FEBRILE NEUTROPENIA
     Route: 065
     Dates: start: 20110615, end: 20110617

REACTIONS (3)
  - Febrile neutropenia [Unknown]
  - Haematotoxicity [Unknown]
  - Platelet count decreased [Recovered/Resolved]

NARRATIVE: CASE EVENT DATE: 20110711
